FAERS Safety Report 9014235 (Version 1)
Quarter: 2013Q1

REPORT INFORMATION
  Report Type: Report from Study
  Country: US (occurrence: US)
  Receive Date: 20130115
  Receipt Date: 20130115
  Transmission Date: 20140127
  Serious: Yes (Hospitalization)
  Sender: FDA-Public Use
  Company Number: US-ACTELION-A-NJ2012-76286

PATIENT
  Age: 80 Year
  Sex: Female

DRUGS (14)
  1. TRACLEER [Suspect]
     Indication: PULMONARY HYPERTENSION
     Dosage: 125 MG, BID
     Route: 048
  2. TRACLEER [Suspect]
     Dosage: UNK
     Route: 048
     Dates: start: 200803
  3. SILDENAFIL [Concomitant]
     Dosage: 40 MG, TID
  4. FEBUXOSTAT [Concomitant]
     Dosage: 40 MG, UNK
  5. POTASSIUM CHLORIDE [Concomitant]
     Dosage: 10 MEQ, BID
  6. FUROSEMIDE [Concomitant]
     Dosage: 20 MG, QD
  7. OMEPRAZOLE [Concomitant]
     Dosage: 20 MG, QD
  8. FOSINOPRIL [Concomitant]
     Dosage: UNK, QD
  9. PLAVIX [Concomitant]
     Dosage: UNK, QD
  10. METOPROLOL [Concomitant]
     Dosage: 25 MG, QD
  11. SERTRALINE [Concomitant]
     Dosage: 75 MG, QID
  12. CALTRATE [Concomitant]
     Dosage: 600 UNK, QD
  13. BIMATOPROST [Concomitant]
     Dosage: UNK, QD
  14. OXYGEN [Concomitant]

REACTIONS (8)
  - Depression [Unknown]
  - Gastrooesophageal reflux disease [Unknown]
  - Viral upper respiratory tract infection [Recovering/Resolving]
  - Dyspnoea [Recovering/Resolving]
  - Nasopharyngitis [Recovering/Resolving]
  - Glaucoma [Unknown]
  - Pneumonia [Unknown]
  - Cough [Unknown]
